FAERS Safety Report 5836254-4 (Version None)
Quarter: 2008Q3

REPORT INFORMATION
  Report Type: 
  Country: None (occurrence: None)
  Receive Date: 20080730
  Receipt Date: 20070729
  Transmission Date: 20090109
  Serious: Yes (Other)
  Sender: FDA-Public Use
  Company Number: US-JNJFOC-20070707041

PATIENT
  Age: 78 Year
  Sex: Female
  Weight: 65.7716 kg

DRUGS (4)
  1. IMODIUM A-D [Suspect]
     Indication: DRUG USE FOR UNKNOWN INDICATION
     Dosage: 1 OR 2 ^TABLETS^ DAILY AS NECESSARY
     Dates: start: 20020101
  2. IMODIUM A-D [Suspect]
  3. LOVASTATIN [Concomitant]
  4. SYNTHROID [Concomitant]

REACTIONS (1)
  - DIZZINESS [None]
